FAERS Safety Report 10260081 (Version 1)
Quarter: 2014Q2

REPORT INFORMATION
  Report Type: Spontaneous
  Country: US (occurrence: US)
  Receive Date: 20140625
  Receipt Date: 20140625
  Transmission Date: 20141212
  Serious: No
  Sender: FDA-Public Use
  Company Number: US-BAXTER-2014BAX030533

PATIENT
  Age: 58 Year
  Sex: Female
  Weight: 68.2 kg

DRUGS (2)
  1. GAMMAGARD LIQUID [Suspect]
     Indication: IMMUNODEFICIENCY COMMON VARIABLE
     Route: 042
     Dates: start: 20140110
  2. GAMMAGARD LIQUID [Suspect]
     Dosage: 128ML/HR
     Route: 042
     Dates: start: 20140207, end: 20140207

REACTIONS (3)
  - Musculoskeletal stiffness [Recovered/Resolved]
  - Musculoskeletal stiffness [Recovered/Resolved]
  - Nausea [Recovered/Resolved]
